FAERS Safety Report 9616274 (Version 11)
Quarter: 2014Q4

REPORT INFORMATION
  Report Type: Report from Study
  Country: US (occurrence: US)
  Receive Date: 20131011
  Receipt Date: 20141117
  Transmission Date: 20150529
  Serious: Yes (Hospitalization, Other)
  Sender: FDA-Public Use
  Company Number: US-SA-2013SA098703

PATIENT
  Age: 67 Year
  Sex: Female

DRUGS (3)
  1. AUBAGIO [Suspect]
     Active Substance: TERIFLUNOMIDE
     Indication: MULTIPLE SCLEROSIS
     Route: 048
  2. AUBAGIO [Suspect]
     Active Substance: TERIFLUNOMIDE
     Indication: MULTIPLE SCLEROSIS
     Dosage: DRUG TEMPORARILY STOPPED DUE TO REIMBURSEMENT ISSUES.
     Route: 048
     Dates: start: 20121108, end: 20130923
  3. AUBAGIO [Suspect]
     Active Substance: TERIFLUNOMIDE
     Indication: MULTIPLE SCLEROSIS
     Route: 048
     Dates: start: 20131108

REACTIONS (18)
  - Alopecia [Not Recovered/Not Resolved]
  - Spinal pain [Unknown]
  - Rectal prolapse [Unknown]
  - Gait disturbance [Unknown]
  - Musculoskeletal stiffness [Unknown]
  - Scar [Unknown]
  - Road traffic accident [Unknown]
  - Neuropathy peripheral [Not Recovered/Not Resolved]
  - Neck pain [Unknown]
  - Bronchitis [Unknown]
  - Drug dose omission [Unknown]
  - Diverticulitis [Unknown]
  - Asthenia [Unknown]
  - Emphysema [Unknown]
  - Nasopharyngitis [Unknown]
  - Hypoaesthesia [Unknown]
  - Memory impairment [Unknown]
  - Multiple sclerosis relapse [Unknown]

NARRATIVE: CASE EVENT DATE: 20140204
